FAERS Safety Report 20883108 (Version 1)
Quarter: 2022Q2

REPORT INFORMATION
  Report Type: Spontaneous
  Country: US (occurrence: None)
  Receive Date: 20220526
  Receipt Date: 20220526
  Transmission Date: 20220721
  Serious: No
  Sender: FDA-Public Use
  Company Number: None

PATIENT
  Sex: Female

DRUGS (1)
  1. TALTZ [Suspect]
     Active Substance: IXEKIZUMAB
     Indication: Psoriatic arthropathy
     Dosage: OTHER QUANTITY : 2,1 PEN(S);?OTHER FREQUENCY : WEEK 0,2,4,6,8,10,;?
     Route: 058
     Dates: start: 20220512

REACTIONS (3)
  - Drug ineffective [None]
  - Injection site mass [None]
  - Injection site erythema [None]
